FAERS Safety Report 8221852-3 (Version None)
Quarter: 2012Q1

REPORT INFORMATION
  Report Type: 
  Country: None (occurrence: None)
  Receive Date: 20120316
  Receipt Date: 20120228
  Transmission Date: 20120608
  Serious: Yes (Hospitalization)
  Sender: FDA-Public Use
  Company Number: JPI-P-020036

PATIENT
  Age: 2 Decade
  Sex: Male

DRUGS (2)
  1. VERAPAMIL [Concomitant]
  2. XYREM [Suspect]
     Indication: CATAPLEXY
     Dosage: (3-6 GRAMS PER DAY), ORAL
     Route: 048

REACTIONS (5)
  - ACCIDENTAL OVERDOSE [None]
  - MEMORY IMPAIRMENT [None]
  - RESPIRATORY DEPRESSION [None]
  - RETROGRADE AMNESIA [None]
  - INCORRECT DOSE ADMINISTERED [None]
